FAERS Safety Report 12285941 (Version 1)
Quarter: 2016Q2

REPORT INFORMATION
  Report Type: Spontaneous
  Country: US (occurrence: None)
  Receive Date: 20160419
  Receipt Date: 20160419
  Transmission Date: 20160815
  Serious: Yes (Death, Hospitalization)
  Sender: FDA-Public Use
  Company Number: None

PATIENT
  Age: 76 Year
  Sex: Male
  Weight: 67.7 kg

DRUGS (8)
  1. XANAX [Concomitant]
     Active Substance: ALPRAZOLAM
  2. COZAAR [Concomitant]
     Active Substance: LOSARTAN POTASSIUM
  3. LIPITOR [Concomitant]
     Active Substance: ATORVASTATIN CALCIUM
  4. NEXIUM [Concomitant]
     Active Substance: ESOMEPRAZOLE MAGNESIUM
  5. IMODIUM A-D [Concomitant]
     Active Substance: LOPERAMIDE HYDROCHLORIDE
  6. NORVASC [Concomitant]
     Active Substance: AMLODIPINE BESYLATE
  7. ERBITUX [Suspect]
     Active Substance: CETUXIMAB
     Dates: end: 20160407
  8. CAMPTOSAR [Suspect]
     Active Substance: IRINOTECAN HYDROCHLORIDE
     Dates: end: 20160407

REACTIONS (7)
  - Diarrhoea [None]
  - Abdominal distension [None]
  - Dehydration [None]
  - Febrile neutropenia [None]
  - Asthenia [None]
  - Renal failure [None]
  - Fatigue [None]

NARRATIVE: CASE EVENT DATE: 20160413
